FAERS Safety Report 8435771-0 (Version None)
Quarter: 2012Q2

REPORT INFORMATION
  Report Type: 
  Country: None (occurrence: None)
  Receive Date: 20120614
  Receipt Date: 20120601
  Transmission Date: 20120825
  Serious: Yes (Hospitalization)
  Sender: FDA-Public Use
  Company Number: US-ELI_LILLY_AND_COMPANY-US201110004440

PATIENT
  Sex: Female

DRUGS (2)
  1. CELEBREX [Concomitant]
     Indication: PRODUCT USED FOR UNKNOWN INDICATION
     Dosage: UNK
  2. FORTEO [Suspect]
     Indication: OSTEOPOROSIS
     Dosage: 20 UNK, UNK
     Dates: start: 20110601

REACTIONS (8)
  - HIP SURGERY [None]
  - SURGERY [None]
  - INJECTION SITE HAEMATOMA [None]
  - PAIN [None]
  - DRUG DOSE OMISSION [None]
  - PAIN IN EXTREMITY [None]
  - INJECTION SITE DISCOMFORT [None]
  - INJECTION SITE PAIN [None]
